FAERS Safety Report 20321229 (Version 1)
Quarter: 2022Q1

REPORT INFORMATION
  Report Type: Spontaneous
  Country: US (occurrence: None)
  Receive Date: 20220110
  Receipt Date: 20220110
  Transmission Date: 20220424
  Serious: No
  Sender: FDA-Public Use
  Company Number: None

PATIENT
  Sex: Female

DRUGS (1)
  1. CIMZIA [Suspect]
     Active Substance: CERTOLIZUMAB PEGOL
     Indication: Rheumatoid arthritis
     Dosage: 500MG EVERY 4 WEEKS SUBQ??FROM 02/18/2020  TO   ON HOLD?
     Route: 058
     Dates: start: 20200218

REACTIONS (2)
  - Surgery [None]
  - Therapy interrupted [None]
